FAERS Safety Report 7459596-8 (Version None)
Quarter: 2011Q2

REPORT INFORMATION
  Report Type: 
  Country: None (occurrence: None)
  Receive Date: 20110505
  Receipt Date: 20110421
  Transmission Date: 20111010
  Serious: Yes (Other)
  Sender: FDA-Public Use
  Company Number: CA-JNJFOC-20110410698

PATIENT
  Sex: Male
  Weight: 74 kg

DRUGS (8)
  1. REMICADE [Suspect]
     Indication: COLITIS ULCERATIVE
     Route: 042
  2. REMICADE [Suspect]
     Route: 042
  3. CALCIUM [Concomitant]
  4. BENADRYL [Concomitant]
     Indication: PREMEDICATION
     Route: 042
  5. HYDROCORTISONE [Concomitant]
     Indication: PREMEDICATION
     Route: 042
  6. VITAMIN D [Concomitant]
  7. ASACOL [Concomitant]
     Dosage: 800MG (TWO)
     Route: 048
  8. ACETAMINOPHEN [Concomitant]
     Indication: PREMEDICATION
     Route: 048

REACTIONS (2)
  - SINUSITIS [None]
  - CHOLANGITIS SCLEROSING [None]
